FAERS Safety Report 4930018-1 (Version None)
Quarter: 2006Q1

REPORT INFORMATION
  Report Type: 
  Country: None (occurrence: None)
  Receive Date: 20060302
  Receipt Date: 20060301
  Transmission Date: 20060701
  Serious: Yes (Death, Other)
  Sender: FDA-Public Use
  Company Number: DE-JNJFOC-20051203381

PATIENT
  Sex: Male
  Weight: 85 kg

DRUGS (17)
  1. REOPRO [Suspect]
     Dosage: 7.3 MG (17 ML/HR) INFUSION
     Route: 042
  2. REOPRO [Suspect]
     Indication: DRUG USE FOR UNKNOWN INDICATION
     Dosage: 21.25 MG (10.6 ML) BOLUS
     Route: 042
  3. BIVALIRUDIN [Suspect]
     Route: 042
  4. BIVALIRUDIN [Suspect]
     Dosage: 82.5 MG (4 ML/HR)
     Route: 042
  5. BIVALIRUDIN [Suspect]
     Route: 042
  6. BIVALIRUDIN [Suspect]
     Dosage: 160 MG, 0.25 MG/KG/HR
     Route: 042
  7. BIVALIRUDIN [Suspect]
     Indication: DRUG USE FOR UNKNOWN INDICATION
     Route: 042
  8. HEPARIN [Concomitant]
  9. ASPIRIN [Concomitant]
  10. CLOPIDOGREL [Concomitant]
  11. ZOCOR [Concomitant]
  12. CARVEDILOL [Concomitant]
  13. CAPTOPRIL [Concomitant]
  14. LANICOR [Concomitant]
  15. ROCEPHIN [Concomitant]
  16. CLINDAMYCIN [Concomitant]
  17. FUROSIDE [Concomitant]

REACTIONS (2)
  - SUDDEN CARDIAC DEATH [None]
  - THROMBOCYTOPENIA [None]
